FAERS Safety Report 5772041-3 (Version None)
Quarter: 2008Q2

REPORT INFORMATION
  Report Type: 
  Country: None (occurrence: None)
  Receive Date: 20080613
  Receipt Date: 20080604
  Transmission Date: 20081010
  Serious: Yes (Other)
  Sender: FDA-Public Use
  Company Number: GB-ASTRAZENECA-2008GB00973

PATIENT
  Sex: Female
  Weight: 89.1 kg

DRUGS (1)
  1. SEROQUEL [Suspect]
     Indication: SCHIZOPHRENIA
     Dosage: 100MG IN MORNING AND 200MG AT NIGHT
     Route: 048
     Dates: start: 20070901

REACTIONS (3)
  - SLEEP DISORDER [None]
  - STRESS [None]
  - THERAPEUTIC RESPONSE UNEXPECTED [None]
